FAERS Safety Report 10200944 (Version 1)
Quarter: 2014Q2

REPORT INFORMATION
  Report Type: Report from Study
  Country: PE (occurrence: PE)
  Receive Date: 20140528
  Receipt Date: 20140528
  Transmission Date: 20141212
  Serious: Yes (Other)
  Sender: FDA-Public Use
  Company Number: PE-ASTRAZENECA-2014SE36138

PATIENT
  Age: 26265 Day
  Sex: Female

DRUGS (2)
  1. ATACAND PLUS [Suspect]
     Indication: HYPERTENSION
     Dosage: 8 + 12.5 MG DAILY
     Route: 048
     Dates: start: 20050320
  2. CRESTOR [Concomitant]
     Route: 048
     Dates: start: 20110520

REACTIONS (6)
  - Drug ineffective [Unknown]
  - Hypertension [Unknown]
  - Cellulitis [Recovered/Resolved]
  - Panic disorder [Unknown]
  - Fall [Unknown]
  - Limb injury [Unknown]
